FAERS Safety Report 6436440-9 (Version None)
Quarter: 2009Q4

REPORT INFORMATION
  Report Type: 
  Country: None (occurrence: None)
  Receive Date: 20091111
  Receipt Date: 20091102
  Transmission Date: 20100525
  Serious: Yes (Other)
  Sender: FDA-Public Use
  Company Number: US-CELGENEUS-163-21880-09091456

PATIENT
  Sex: Female

DRUGS (3)
  1. REVLIMID [Suspect]
     Indication: MULTIPLE MYELOMA
     Route: 048
     Dates: start: 20090904, end: 20090901
  2. REVLIMID [Suspect]
     Route: 048
     Dates: start: 20090930, end: 20091027
  3. REVLIMID [Suspect]
     Route: 048
     Dates: start: 20091101

REACTIONS (3)
  - DYSGEUSIA [None]
  - NIGHT SWEATS [None]
  - URTICARIA [None]
